FAERS Safety Report 22361808 (Version 1)
Quarter: 2023Q2

REPORT INFORMATION
  Report Type: Spontaneous
  Country: US (occurrence: None)
  Receive Date: 20230524
  Receipt Date: 20230524
  Transmission Date: 20230722
  Serious: Yes (Other)
  Sender: FDA-Public Use
  Company Number: None

PATIENT
  Age: 60 Year
  Sex: Male
  Weight: 107.95 kg

DRUGS (1)
  1. BUPRENORPHINE\NALOXONE [Suspect]
     Active Substance: BUPRENORPHINE\NALOXONE
     Indication: Drug use disorder
     Dosage: OTHER QUANTITY : 8-2 MG;?FREQUENCY : 4 TIMES A DAY;?
     Route: 060
     Dates: start: 20230509

REACTIONS (5)
  - Product substitution issue [None]
  - Therapeutic response changed [None]
  - Drug dependence [None]
  - Dependence [None]
  - Insurance issue [None]

NARRATIVE: CASE EVENT DATE: 20230509
